FAERS Safety Report 9880973 (Version 1)
Quarter: 2014Q1

REPORT INFORMATION
  Report Type: Spontaneous
  Country: FR (occurrence: FR)
  Receive Date: 20140207
  Receipt Date: 20140207
  Transmission Date: 20141002
  Serious: Yes (Hospitalization)
  Sender: FDA-Public Use
  Company Number: FR-NOVOPROD-399385

PATIENT
  Age: 86 Year
  Sex: Male

DRUGS (7)
  1. NOVONORM [Suspect]
     Indication: TYPE 2 DIABETES MELLITUS
     Dosage: 1 MG, QD
     Route: 048
     Dates: end: 20131211
  2. LANTUS [Suspect]
     Indication: PRODUCT USED FOR UNKNOWN INDICATION
     Dosage: 30 IU, QD
     Route: 058
  3. LANTUS [Suspect]
     Dosage: 8 IU, QD (MORNING)
     Route: 058
     Dates: start: 20131211
  4. LEVOTHYROX [Concomitant]
     Dosage: UNK
     Route: 065
  5. KARDEGIC [Concomitant]
     Dosage: UNK
     Route: 065
  6. SEROPRAM                           /00582602/ [Concomitant]
     Dosage: UNK
     Route: 065
  7. STAGID [Concomitant]
     Dosage: 700

REACTIONS (2)
  - Malaise [Recovered/Resolved]
  - Hypoglycaemia [Recovered/Resolved]
